FAERS Safety Report 7588762-6 (Version None)
Quarter: 2011Q3

REPORT INFORMATION
  Report Type: 
  Country: None (occurrence: None)
  Receive Date: 20110705
  Receipt Date: 20110701
  Transmission Date: 20111222
  Serious: Yes (Other)
  Sender: FDA-Public Use
  Company Number: JP-JNJFOC-20110605288

PATIENT
  Age: 57 Year
  Sex: Female

DRUGS (2)
  1. CEFOZOPRAN HYDROCHLORIDE [Suspect]
     Indication: PRODUCT USED FOR UNKNOWN INDICATION
     Route: 065
  2. DORIPENEM MONOHYDRATE [Suspect]
     Indication: INFECTIOUS PERITONITIS
     Route: 041

REACTIONS (2)
  - PSEUDOMEMBRANOUS COLITIS [None]
  - INTESTINAL PERFORATION [None]
